FAERS Safety Report 7765870-8 (Version None)
Quarter: 2011Q3

REPORT INFORMATION
  Report Type: 
  Country: None (occurrence: None)
  Receive Date: 20110921
  Receipt Date: 20110908
  Transmission Date: 20111222
  Serious: Yes (Hospitalization, Other)
  Sender: FDA-Public Use
  Company Number: US-ELI_LILLY_AND_COMPANY-US201109002839

PATIENT
  Age: 62 Year
  Sex: Female

DRUGS (2)
  1. CYMBALTA [Suspect]
     Dosage: 90 MG, QD
     Dates: start: 20110801
  2. CYMBALTA [Suspect]
     Dosage: 60 MG, QD

REACTIONS (3)
  - ADVERSE EVENT [None]
  - ORTHOSTATIC HYPOTENSION [None]
  - RENAL TRANSPLANT [None]
